FAERS Safety Report 8303518-4 (Version None)
Quarter: 2012Q2

REPORT INFORMATION
  Report Type: 
  Country: None (occurrence: None)
  Receive Date: 20120418
  Receipt Date: 20111230
  Transmission Date: 20120825
  Serious: Yes (Other)
  Sender: FDA-Public Use
  Company Number: WIL-033-11-DE

PATIENT
  Age: 20 Year
  Sex: Female

DRUGS (1)
  1. WILATE [Suspect]
     Indication: HAEMORRHAGE
     Dosage: 270 IU - 1 X 1/ TOTAL
     Dates: start: 20110812, end: 20110812

REACTIONS (5)
  - MATERNAL EXPOSURE DURING PREGNANCY [None]
  - NAUSEA [None]
  - FLUSHING [None]
  - PANIC REACTION [None]
  - RESPIRATORY DISTRESS [None]
